FAERS Safety Report 8865346 (Version 1)
Quarter: 2012Q4

REPORT INFORMATION
  Report Type: 
  Country: US (occurrence: US)
  Receive Date: 20121024
  Receipt Date: 20121024
  Transmission Date: 20130627
  Serious: No
  Sender: FDA-Public Use
  Company Number: US-AMGEN-USASP2012002295

PATIENT
  Age: 71 Year
  Sex: Female

DRUGS (12)
  1. ENBREL [Suspect]
     Indication: PRODUCT USED FOR UNKNOWN INDICATION
     Dosage: 50 mg, qwk
     Route: 058
     Dates: start: 20110701
  2. MELOXICAM [Concomitant]
     Dosage: 7.5 mg, UNK
  3. LISINOPRIL [Concomitant]
     Dosage: 10 mg, UNK
  4. CITALOPRAM [Concomitant]
     Dosage: 10 mg, UNK
  5. SIMVASTATIN [Concomitant]
     Dosage: 10 mg, UNK
  6. VENLAFAXINE [Concomitant]
     Dosage: 150 mg, UNK
  7. CITRUCEL [Concomitant]
  8. ZANTAC [Concomitant]
     Dosage: 150 mg, UNK
  9. MULTIVITAMIN                       /00097801/ [Concomitant]
  10. ASPIRIN BUFFERED [Concomitant]
     Dosage: 325 mg, UNK
  11. FISH OIL [Concomitant]
  12. CITRACAL + D                       /01438101/ [Concomitant]

REACTIONS (3)
  - Pain in extremity [Recovered/Resolved]
  - Arthralgia [Recovered/Resolved]
  - Joint swelling [Recovered/Resolved]
